FAERS Safety Report 21312400 (Version 2)
Quarter: 2022Q4

REPORT INFORMATION
  Report Type: Other
  Country: AU (occurrence: AU)
  Receive Date: 20220909
  Receipt Date: 20221129
  Transmission Date: 20230113
  Serious: Yes (Other)
  Sender: FDA-Public Use
  Company Number: AU-ASTELLAS-2022US031899

PATIENT
  Age: 42 Year
  Sex: Female

DRUGS (4)
  1. TACROLIMUS [Suspect]
     Active Substance: TACROLIMUS
     Indication: Acute graft versus host disease
     Dosage: UNK, UNKNOWN FREQ.
     Route: 065
     Dates: start: 202205, end: 202206
  2. TACROLIMUS [Suspect]
     Active Substance: TACROLIMUS
     Dosage: UNK, UNKNOWN FREQ.
     Route: 065
     Dates: start: 20220727
  3. METHYLPREDNISOLONE [Suspect]
     Active Substance: METHYLPREDNISOLONE
     Indication: Acute graft versus host disease
     Dosage: UNK, UNKNOWN FREQ.
     Route: 065
     Dates: start: 20220718, end: 20220727
  4. MYCOPHENOLATE MOFETIL [Suspect]
     Active Substance: MYCOPHENOLATE MOFETIL
     Indication: Acute graft versus host disease
     Dosage: UNK, UNKNOWN FREQ.
     Route: 065
     Dates: start: 202205, end: 202205

REACTIONS (15)
  - Graft versus host disease in gastrointestinal tract [Unknown]
  - Colitis [Unknown]
  - Cystitis haemorrhagic [Unknown]
  - Cytomegalovirus viraemia [Unknown]
  - Delayed graft function [Unknown]
  - Diarrhoea [Not Recovered/Not Resolved]
  - Microangiopathy [Unknown]
  - Mucosal haemorrhage [Unknown]
  - Mucosal inflammation [Unknown]
  - Rash [Recovered/Resolved]
  - Ulcer [Unknown]
  - Weight decreased [Unknown]
  - Blood albumin decreased [Unknown]
  - Treatment failure [Unknown]
  - Product use in unapproved indication [Unknown]

NARRATIVE: CASE EVENT DATE: 20220501
